FAERS Safety Report 4855024-7 (Version None)
Quarter: 2005Q4

REPORT INFORMATION
  Report Type: 
  Country: None (occurrence: None)
  Receive Date: 20051214
  Receipt Date: 20051201
  Transmission Date: 20060501
  Serious: Yes (Hospitalization)
  Sender: FDA-Public Use
  Company Number: 2005163802

PATIENT
  Age: 75 Year
  Sex: Male

DRUGS (6)
  1. NEURONTIN [Suspect]
     Indication: NEURALGIA
     Dosage: 900 MG (300 MG, 3 IN 1 D), ORAL
     Route: 048
     Dates: start: 20050713, end: 20050719
  2. PANTOPRAZOLE SODIUM [Suspect]
     Indication: ILL-DEFINED DISORDER
     Dosage: 20 MG (20 MG, 1 IN 1 D), ORAL
     Route: 048
     Dates: start: 20050714, end: 20050718
  3. PREDNISONE [Concomitant]
  4. TOREM (TORASEMIDE) [Concomitant]
  5. KCL-ZYMA (POTASSIUM CHLORIDE) [Concomitant]
  6. MARCUMAR [Concomitant]

REACTIONS (1)
  - HEPATIC ENZYME INCREASED [None]
